FAERS Safety Report 22165095 (Version 1)
Quarter: 2023Q2

REPORT INFORMATION
  Report Type: Spontaneous
  Country: BR (occurrence: None)
  Receive Date: 20230403
  Receipt Date: 20230403
  Transmission Date: 20230721
  Serious: Yes (Death, Other)
  Sender: FDA-Public Use
  Company Number: BR-Merck Healthcare KGaA-9392452

PATIENT
  Sex: Male

DRUGS (3)
  1. GLIFAGE [Suspect]
     Active Substance: METFORMIN HYDROCHLORIDE
     Indication: Diabetes mellitus
     Dosage: UNKNOWN DOSAGE
     Route: 048
  2. GLIFAGE [Suspect]
     Active Substance: METFORMIN HYDROCHLORIDE
     Dosage: 2 MONTHS AGO
     Route: 048
     Dates: start: 202301
  3. LOSARTAN POTASSIUM [Concomitant]
     Active Substance: LOSARTAN POTASSIUM
     Indication: Product used for unknown indication
     Dosage: PRESENTATION NOT REPORTED

REACTIONS (6)
  - Myocardial infarction [Fatal]
  - Cerebrovascular accident [Unknown]
  - Infarction [Unknown]
  - Blood glucose decreased [Unknown]
  - Blood pressure abnormal [Unknown]
  - Malaise [Unknown]

NARRATIVE: CASE EVENT DATE: 20230101
